FAERS Safety Report 26026107 (Version 1)
Quarter: 2025Q4

REPORT INFORMATION
  Report Type: Spontaneous
  Country: CN (occurrence: CN)
  Receive Date: 20251111
  Receipt Date: 20251111
  Transmission Date: 20260118
  Serious: Yes (Life-Threatening, Other)
  Sender: BAYER HEALTHCARE PHARMACEUTICALS INC.
  Company Number: CN-BAYER-2025A148414

PATIENT
  Age: 2 Year
  Sex: Female
  Weight: 11.5 kg

DRUGS (2)
  1. ULTRAVIST [Suspect]
     Active Substance: IOPROMIDE
     Indication: Computerised tomogram neck
     Dosage: 16.5 ML, ONCE WITH 0.9% SODIUM CHLORIDE INJECTION
     Route: 042
     Dates: start: 20251027, end: 20251027
  2. ULTRAVIST [Suspect]
     Active Substance: IOPROMIDE
     Indication: Neck mass

REACTIONS (7)
  - Contrast media allergy [Recovering/Resolving]
  - Laryngeal oedema [Recovering/Resolving]
  - Respiratory failure [Recovering/Resolving]
  - Oxygen saturation decreased [Recovered/Resolved]
  - Heart rate increased [Recovered/Resolved]
  - Dyspnoea [Recovering/Resolving]
  - Cyanosis [None]

NARRATIVE: CASE EVENT DATE: 20251027
